FAERS Safety Report 7184559-X (Version None)
Quarter: 2010Q4

REPORT INFORMATION
  Report Type: 
  Country: None (occurrence: None)
  Receive Date: 20101222
  Receipt Date: 20101209
  Transmission Date: 20110411
  Serious: Yes (Other)
  Sender: FDA-Public Use
  Company Number: TR-ELI_LILLY_AND_COMPANY-TR201012002806

PATIENT

DRUGS (5)
  1. HUMULIN R [Suspect]
     Indication: GESTATIONAL DIABETES
     Dosage: 2 U, 3/D
     Route: 064
     Dates: start: 20100915, end: 20101101
  2. HUMULIN N [Suspect]
     Indication: GESTATIONAL DIABETES
     Dosage: 4 U, DAILY (1/D)
     Route: 064
     Dates: start: 20100915, end: 20101101
  3. MULTIBIONTA [Concomitant]
     Dosage: UNK, DAILY (1/D)
     Dates: start: 20100401, end: 20101101
  4. FERRUM [Concomitant]
     Dosage: UNK, DAILY (1/D)
     Dates: start: 20100401, end: 20101101
  5. FISH OIL [Concomitant]
     Dosage: UNK, DAILY (1/D)
     Dates: start: 20100401, end: 20101101

REACTIONS (3)
  - DRUG EXPOSURE DURING PREGNANCY [None]
  - MACROSOMIA [None]
  - RESPIRATORY DISORDER NEONATAL [None]
